FAERS Safety Report 18788649 (Version 1)
Quarter: 2021Q1

REPORT INFORMATION
  Report Type: Other
  Country: IT (occurrence: IT)
  Receive Date: 20210125
  Receipt Date: 20210125
  Transmission Date: 20210419
  Serious: Yes (Death)
  Sender: FDA-Public Use
  Company Number: IT-HQ SPECIALTY-IT-2021INT000004

PATIENT
  Age: 73 Year
  Sex: Male

DRUGS (5)
  1. QUETIAPINE FUMARATE. [Suspect]
     Active Substance: QUETIAPINE FUMARATE
     Indication: PRODUCT USED FOR UNKNOWN INDICATION
     Dosage: 50 MG, 1 D
     Route: 048
     Dates: start: 20201224, end: 20201229
  2. FLUCONAZOLE. [Suspect]
     Active Substance: FLUCONAZOLE
     Indication: FUNGAL INFECTION
     Dosage: 400 MG, 1 D
     Route: 042
     Dates: start: 20201227, end: 20201229
  3. DEXMEDETOMIDINE HYDROCHLORIDE. [Suspect]
     Active Substance: DEXMEDETOMIDINE HYDROCHLORIDE
     Indication: SEDATION
     Dosage: 16 UG/KG, 1 D
     Route: 041
     Dates: start: 20201130, end: 20201225
  4. VANCOMYCIN [Suspect]
     Active Substance: VANCOMYCIN
     Indication: INFECTION
     Dosage: 2 GM, 1 D
     Route: 041
     Dates: start: 20201226, end: 20201229
  5. MEROPENEM. [Suspect]
     Active Substance: MEROPENEM
     Indication: INFECTION
     Dosage: 3 GM, 1 D
     Route: 042
     Dates: start: 20201224, end: 20201229

REACTIONS (5)
  - Skin exfoliation [Fatal]
  - Purpura [Fatal]
  - Erythema [Fatal]
  - Blister [Fatal]
  - Macule [Fatal]

NARRATIVE: CASE EVENT DATE: 20201229
